FAERS Safety Report 13230423 (Version 1)
Quarter: 2017Q1

REPORT INFORMATION
  Report Type: Spontaneous
  Country: GB (occurrence: GB)
  Receive Date: 20170214
  Receipt Date: 20170214
  Transmission Date: 20170428
  Serious: Yes (Disabling, Other)
  Sender: FDA-Public Use
  Company Number: GB-PFIZER INC-2017057953

PATIENT
  Age: 69 Year
  Sex: Male
  Weight: 92 kg

DRUGS (9)
  1. SALBUTAMOL [Concomitant]
     Active Substance: ALBUTEROL
     Dosage: 100 UG, 1 TO 2 PUFFS UP TO FOUR TIMES DAILY
     Route: 055
     Dates: start: 20161101
  2. THIAMINE. [Concomitant]
     Active Substance: THIAMINE
     Dosage: 50 MG, 4X/DAY
     Dates: start: 20161101, end: 20161109
  3. TRIMETHOPRIM. [Concomitant]
     Active Substance: TRIMETHOPRIM
     Dosage: 200 MG, 2X/DAY
     Dates: start: 20161114
  4. COCODAMOL [Concomitant]
     Active Substance: ACETAMINOPHEN\CODEINE PHOSPHATE
     Dosage: 1-2 CAPSULES UP TO FOUR TIMES DAILY, 300MG/ 500MG
     Dates: start: 20161104
  5. ATORVASTATIN CALCIUM. [Suspect]
     Active Substance: ATORVASTATIN CALCIUM
     Dosage: 40 MG, UNK
  6. IPRATROPIUM BROMIDE. [Concomitant]
     Active Substance: IPRATROPIUM BROMIDE
     Dosage: 20 UG, 3X/DAY PUFF (INHALER CFC FREE)
     Route: 055
     Dates: start: 20161101
  7. DIGOXIN. [Concomitant]
     Active Substance: DIGOXIN
     Dosage: 125 UG, 1X/DAY IN MORNING.
     Dates: start: 20161101
  8. OMEPRAZOLE. [Concomitant]
     Active Substance: OMEPRAZOLE
     Dosage: 20 MG, 1X/DAY AT LUNCHTIME
     Dates: start: 20161101
  9. WARFARIN [Concomitant]
     Active Substance: WARFARIN
     Dosage: 1 MG, AS DIRECTED IN YELLOW BOOK
     Dates: start: 20161026

REACTIONS (3)
  - Condition aggravated [Recovered/Resolved]
  - Mobility decreased [Recovering/Resolving]
  - Cognitive disorder [Recovered/Resolved]

NARRATIVE: CASE EVENT DATE: 20160701
